FAERS Safety Report 5324193-7 (Version None)
Quarter: 2007Q2

REPORT INFORMATION
  Report Type: 
  Country: None (occurrence: None)
  Receive Date: 20070514
  Receipt Date: 20070504
  Transmission Date: 20071010
  Serious: Yes (Hospitalization)
  Sender: FDA-Public Use
  Company Number: AU-BRISTOL-MYERS SQUIBB COMPANY-13776356

PATIENT
  Age: 45 Year
  Sex: Female

DRUGS (7)
  1. METFORMIN HCL [Suspect]
     Indication: DIABETES MELLITUS
     Dates: start: 20020322
  2. ROSIGLITAZONE [Suspect]
     Indication: DIABETES MELLITUS
     Route: 048
     Dates: start: 20021107, end: 20060904
  3. NAPROXEN [Suspect]
  4. ALLOPURINOL [Suspect]
  5. COVERSYL PLUS [Suspect]
  6. ACETAMINOPHEN W/ CODEINE [Suspect]
  7. PROPRANOLOL HYDROCHLORIDE [Suspect]

REACTIONS (2)
  - CARDIAC FAILURE CONGESTIVE [None]
  - CELLULITIS [None]
